FAERS Safety Report 24392895 (Version 1)
Quarter: 2024Q4

REPORT INFORMATION
  Report Type: Spontaneous
  Country: FR (occurrence: FR)
  Receive Date: 20241003
  Receipt Date: 20241003
  Transmission Date: 20250115
  Serious: Yes (Hospitalization)
  Sender: TEVA
  Company Number: None

PATIENT
  Age: 89 Year
  Sex: Female
  Weight: 87 kg

DRUGS (22)
  1. FLUCONAZOLE [Suspect]
     Active Substance: FLUCONAZOLE
     Indication: Urinary tract infection fungal
     Route: 048
     Dates: start: 20240830
  2. POTASSIUM CHLORIDE [Concomitant]
     Active Substance: POTASSIUM CHLORIDE
     Indication: Hypokalaemia
     Route: 048
  3. IPRATROPIUM [Suspect]
     Active Substance: IPRATROPIUM
     Indication: Pneumonia
     Dosage: 1 DOSE 10H, 16H, 22H, IPRATROPIUM BROMIDE
     Route: 065
     Dates: start: 20240830, end: 20240907
  4. LEVOTHYROXINE SODIUM [Concomitant]
     Active Substance: LEVOTHYROXINE SODIUM
     Indication: Hypothyroidism
     Route: 048
  5. METOCLOPRAMIDE [Concomitant]
     Active Substance: METOCLOPRAMIDE
     Indication: Nausea
     Route: 042
     Dates: start: 20240830, end: 20240908
  6. PHLOROGLUCINOL [Concomitant]
     Active Substance: PHLOROGLUCINOL
     Indication: Abdominal pain
     Dosage: PHLOROGLUCINOL (TRIMETHYL ETHER DU)
     Route: 042
  7. ELIQUIS [Concomitant]
     Active Substance: APIXABAN
     Indication: Atrial fibrillation
     Dosage: 2.5 MG MORNING AND EVENING
     Route: 048
  8. JARDIANCE [Concomitant]
     Active Substance: EMPAGLIFLOZIN
     Indication: Cardiac failure
     Route: 048
  9. SYMBICORT [Concomitant]
     Active Substance: BUDESONIDE\FORMOTEROL FUMARATE DIHYDRATE
     Indication: Chronic obstructive pulmonary disease
     Dosage: 400/12 MORNING AND EVENING
  10. LACTULOSE [Concomitant]
     Active Substance: LACTULOSE
     Indication: Constipation
     Route: 048
  11. TERBUTALINE SULFATE [Suspect]
     Active Substance: TERBUTALINE SULFATE
     Indication: Pneumonia
     Dosage: 1 DOSE 10H, 16H, 22H
     Route: 065
     Dates: start: 20240830
  12. ATORVASTATIN [Concomitant]
     Active Substance: ATORVASTATIN
     Indication: Hypercholesterolaemia
     Route: 048
     Dates: end: 20240907
  13. ALLOPURINOL [Concomitant]
     Active Substance: ALLOPURINOL
     Indication: Gout
     Route: 048
  14. BISOPROLOL [Concomitant]
     Active Substance: BISOPROLOL\BISOPROLOL FUMARATE
     Indication: Cardiac failure
     Dosage: BISOPROLOL ACID FUMARATE
     Route: 048
  15. CEFOTAXIME SODIUM [Suspect]
     Active Substance: CEFOTAXIME SODIUM
     Indication: Pneumonia
     Route: 042
     Dates: start: 20240830, end: 20240906
  16. FUROSEMIDE [Concomitant]
     Active Substance: FUROSEMIDE
     Indication: Cardiac failure
     Route: 048
  17. CETIRIZINE HYDROCHLORIDE [Concomitant]
     Active Substance: CETIRIZINE HYDROCHLORIDE
     Indication: Hypersensitivity
     Route: 048
  18. FOLIC ACID [Concomitant]
     Active Substance: FOLIC ACID
     Indication: Vitamin B complex deficiency
     Route: 048
  19. ZOPICLONE [Concomitant]
     Active Substance: ZOPICLONE
     Indication: Sleep disorder
     Dosage: 1CP AT BEDTIME
     Route: 048
  20. SPIRAMYCIN [Suspect]
     Active Substance: SPIRAMYCIN
     Indication: Pneumonia
     Route: 042
     Dates: start: 20240830, end: 20240904
  21. AMIODARONE [Concomitant]
     Active Substance: AMIODARONE
     Indication: Atrial fibrillation
     Dosage: EXCEPT WE
     Route: 048
  22. ALBUTEROL [Concomitant]
     Active Substance: ALBUTEROL
     Indication: Chronic obstructive pulmonary disease
     Dosage: 100/200MG 2 INHALATIONS MORNING, NOON AND EVENING
     Route: 065

REACTIONS (1)
  - Rash pruritic [Recovered/Resolved]

NARRATIVE: CASE EVENT DATE: 20240904
